FAERS Safety Report 18643194 (Version 1)
Quarter: 2020Q4

REPORT INFORMATION
  Report Type: Spontaneous
  Country: GB (occurrence: GB)
  Receive Date: 20201221
  Receipt Date: 20201221
  Transmission Date: 20210114
  Serious: Yes (Hospitalization, Other)
  Sender: FDA-Public Use
  Company Number: GB-TORRENT-00024559

PATIENT
  Age: 16 Month
  Sex: Female

DRUGS (5)
  1. CEFUROXIME. [Concomitant]
     Active Substance: CEFUROXIME
     Indication: PRODUCT USED FOR UNKNOWN INDICATION
  2. CLONAZEPAM. [Interacting]
     Active Substance: CLONAZEPAM
     Indication: SEIZURE
     Dosage: 100 UG/KG, QD
     Route: 065
  3. LEVETIRACETAM. [Suspect]
     Active Substance: LEVETIRACETAM
     Indication: INFANTILE SPASMS
     Dosage: 30 MG/KG, 1X/DAY
  4. CLOBAZAM. [Suspect]
     Active Substance: CLOBAZAM
     Indication: INFANTILE SPASMS
     Dosage: 400 UG/KG, 1X/DAY
     Route: 065
  5. SABRIL [Interacting]
     Active Substance: VIGABATRIN
     Indication: SEIZURE
     Dosage: 120 MG/KG, QD
     Route: 065

REACTIONS (7)
  - Bronchiolitis [Unknown]
  - Seizure [Unknown]
  - Somnolence [Recovered/Resolved]
  - Drug interaction [Recovered/Resolved]
  - Swelling face [Unknown]
  - Blister [Recovered/Resolved]
  - Coma blister [Recovered/Resolved]
